FAERS Safety Report 9005971 (Version 1)
Quarter: 2013Q1

REPORT INFORMATION
  Report Type: Spontaneous
  Country: US (occurrence: US)
  Receive Date: 20130109
  Receipt Date: 20130109
  Transmission Date: 20140127
  Serious: No
  Sender: FDA-Public Use
  Company Number: US-PFIZER INC-2013010184

PATIENT
  Age: 50 Year
  Sex: Male
  Weight: 134 kg

DRUGS (5)
  1. CHANTIX [Suspect]
     Indication: SMOKING CESSATION THERAPY
     Dosage: 0.5 MG, 1X/DAY
     Route: 048
     Dates: start: 201211
  2. CHANTIX [Suspect]
     Route: 048
  3. NOVOLOG [Concomitant]
     Indication: DIABETES MELLITUS
     Dosage: 40, 2X/DAY
  4. JANUMET [Concomitant]
     Indication: DIABETES MELLITUS
     Dosage: UNK
  5. LEXAPRO [Concomitant]
     Dosage: UNK

REACTIONS (1)
  - Sleep disorder [Unknown]
